FAERS Safety Report 6858211-1 (Version None)
Quarter: 2010Q3

REPORT INFORMATION
  Report Type: 
  Country: None (occurrence: None)
  Receive Date: 20100719
  Receipt Date: 20080308
  Transmission Date: 20110219
  Serious: Yes (Other)
  Sender: FDA-Public Use
  Company Number: US-PFIZER INC-2008011827

PATIENT
  Sex: Male
  Weight: 93 kg

DRUGS (1)
  1. CHANTIX [Suspect]
     Indication: SMOKING CESSATION THERAPY
     Dates: start: 20080126, end: 20080101

REACTIONS (3)
  - ABNORMAL DREAMS [None]
  - NIGHTMARE [None]
  - SUICIDAL IDEATION [None]
